FAERS Safety Report 7296498-4 (Version None)
Quarter: 2011Q1

REPORT INFORMATION
  Report Type: 
  Country: None (occurrence: None)
  Receive Date: 20110216
  Receipt Date: 20110202
  Transmission Date: 20110831
  Serious: Yes (Other)
  Sender: FDA-Public Use
  Company Number: PHHY2010US22307

PATIENT
  Sex: Female

DRUGS (17)
  1. ESTRACE [Concomitant]
     Dosage: UNK
  2. AVAPRO [Concomitant]
  3. PENICILLIN [Suspect]
  4. ELAVIL [Suspect]
     Dosage: 50 MG
  5. CALCIUM WITH VITAMIN D [Concomitant]
  6. LORTAB [Suspect]
  7. PRILOSEC [Concomitant]
  8. FIORICET [Suspect]
  9. RECLAST [Suspect]
     Indication: OSTEOPOROSIS
     Dosage: 5 MG/ 100 ML ONCE
     Dates: start: 20100211
  10. RECLAST [Suspect]
     Indication: PAIN
  11. TYLENOL [Suspect]
  12. PREVACID [Concomitant]
  13. PERCODAN-DEMI [Suspect]
  14. LIPITOR [Concomitant]
  15. DRAMAMINE [Concomitant]
  16. ZETIA [Concomitant]
  17. PAXIL [Concomitant]

REACTIONS (27)
  - SOMNOLENCE [None]
  - NECK PAIN [None]
  - ABDOMINAL PAIN [None]
  - PANCREATITIS [None]
  - HEADACHE [None]
  - FATIGUE [None]
  - BONE DISORDER [None]
  - BEDRIDDEN [None]
  - PYREXIA [None]
  - NAUSEA [None]
  - JOINT SWELLING [None]
  - CHILLS [None]
  - OEDEMA PERIPHERAL [None]
  - PAIN [None]
  - MUSCULOSKELETAL PAIN [None]
  - ERYTHEMA [None]
  - DIZZINESS [None]
  - PAIN IN EXTREMITY [None]
  - MYOCARDIAL INFARCTION [None]
  - INSOMNIA [None]
  - COLITIS [None]
  - PRURITUS [None]
  - MUSCULOSKELETAL STIFFNESS [None]
  - IMPAIRED DRIVING ABILITY [None]
  - HYPOAESTHESIA [None]
  - BACK PAIN [None]
  - NEURALGIA [None]
